FAERS Safety Report 14498015 (Version 1)
Quarter: 2018Q1

REPORT INFORMATION
  Report Type: Spontaneous
  Country: US (occurrence: US)
  Receive Date: 20180207
  Receipt Date: 20180207
  Transmission Date: 20180509
  Serious: Yes (Hospitalization)
  Sender: FDA-Public Use
  Company Number: US-BRAINTREE LABORATORIES-180075

PATIENT
  Age: 75 Year
  Sex: Male
  Weight: 102.05 kg

DRUGS (1)
  1. SUPREP BOWEL PREP [Suspect]
     Active Substance: MAGNESIUM SULFATE\POTASSIUM SULFATE\SODIUM SULFATE
     Indication: COLONOSCOPY
     Dosage: 2 X 6 OZ. BOTTLE
     Route: 048
     Dates: start: 20180110, end: 20180111

REACTIONS (6)
  - Dizziness [None]
  - Drug ineffective [None]
  - Loss of consciousness [None]
  - Lethargy [None]
  - Haematochezia [None]
  - Haemoglobin decreased [None]

NARRATIVE: CASE EVENT DATE: 20180111
